FAERS Safety Report 18741044 (Version 2)
Quarter: 2021Q1

REPORT INFORMATION
  Report Type: Spontaneous
  Country: US (occurrence: US)
  Receive Date: 20210114
  Receipt Date: 20210114
  Transmission Date: 20210419
  Serious: Yes (Hospitalization)
  Sender: FDA-Public Use
  Company Number: US-MYLANLABS-2021M1002138

PATIENT
  Age: 29 Year
  Sex: Female

DRUGS (5)
  1. MAGNESIUM SULFATE. [Suspect]
     Active Substance: MAGNESIUM SULFATE
     Indication: PRE-ECLAMPSIA
     Route: 042
  2. NIFEDIPINE. [Interacting]
     Active Substance: NIFEDIPINE
     Indication: PRE-ECLAMPSIA
     Route: 065
  3. MIRALAX [Concomitant]
     Active Substance: POLYETHYLENE GLYCOL 3350
     Indication: ABDOMINAL PAIN
     Route: 065
  4. LABETALOL [Concomitant]
     Active Substance: LABETALOL\LABETALOL HYDROCHLORIDE
     Indication: PRE-ECLAMPSIA
     Route: 042
  5. MILK OF MAGNESIA [Suspect]
     Active Substance: MAGNESIUM HYDROXIDE
     Indication: ABDOMINAL PAIN
     Route: 065

REACTIONS (21)
  - Sinus tachycardia [Unknown]
  - Dyspnoea [Unknown]
  - Renal failure [Recovering/Resolving]
  - Hypotonia [Unknown]
  - Flushing [Unknown]
  - Lethargy [Unknown]
  - Cardiotoxicity [Unknown]
  - Pyuria [Unknown]
  - Hyporeflexia [Unknown]
  - Maternal exposure during pregnancy [Unknown]
  - Urine output decreased [Recovering/Resolving]
  - Muscular weakness [Unknown]
  - Respiratory rate decreased [Unknown]
  - Bradycardia [Recovered/Resolved]
  - Abdominal distension [Unknown]
  - Toxicity to various agents [Recovering/Resolving]
  - Urinary retention [Unknown]
  - Hypotension [Unknown]
  - Dizziness [Unknown]
  - Drug interaction [Unknown]
  - Abdominal pain [Unknown]
